FAERS Safety Report 11640400 (Version 3)
Quarter: 2015Q4

REPORT INFORMATION
  Report Type: Spontaneous
  Country: IT (occurrence: IT)
  Receive Date: 20151019
  Receipt Date: 20151207
  Transmission Date: 20160304
  Serious: Yes (Hospitalization)
  Sender: FDA-Public Use
  Company Number: IT-JNJFOC-20151008990

PATIENT
  Age: 27 Year
  Sex: Male

DRUGS (2)
  1. BACTRIM [Suspect]
     Active Substance: SULFAMETHOXAZOLE\TRIMETHOPRIM
     Indication: PNEUMONIA
     Route: 048
     Dates: start: 20150926, end: 20151006
  2. PREZISTA [Suspect]
     Active Substance: DARUNAVIR ETHANOLATE
     Indication: ACUTE HIV INFECTION
     Route: 048
     Dates: start: 20150930, end: 20151006

REACTIONS (4)
  - Hyperpyrexia [Recovered/Resolved]
  - Pancytopenia [Recovered/Resolved]
  - Hypertransaminasaemia [Recovered/Resolved]
  - Rash morbilliform [Recovered/Resolved]

NARRATIVE: CASE EVENT DATE: 20151004
